FAERS Safety Report 4674468-X (Version None)
Quarter: 2005Q2

REPORT INFORMATION
  Report Type: 
  Country: None (occurrence: None)
  Receive Date: 20050526
  Receipt Date: 20050511
  Transmission Date: 20051028
  Serious: Yes (Other)
  Sender: FDA-Public Use
  Company Number: US-AMGEN-US132807

PATIENT
  Sex: Male

DRUGS (5)
  1. EPOGEN [Suspect]
     Indication: MYELODYSPLASTIC SYNDROME
     Route: 058
     Dates: start: 20030101, end: 20041101
  2. BLOOD CELLS, PACKED HUMAN [Concomitant]
     Dates: start: 20050201
  3. NITRO-BID [Concomitant]
  4. DOXAZOSIN [Concomitant]
  5. SAW PALMETTO [Concomitant]

REACTIONS (5)
  - ANGINA PECTORIS [None]
  - CEREBROVASCULAR ACCIDENT [None]
  - CONDITION AGGRAVATED [None]
  - CONVULSION [None]
  - SYNCOPE [None]
